FAERS Safety Report 8922886 (Version 1)
Quarter: 2012Q4

REPORT INFORMATION
  Report Type: Report from Study
  Country: US (occurrence: US)
  Receive Date: 20121123
  Receipt Date: 20121123
  Transmission Date: 20130627
  Serious: Yes (Hospitalization, Other)
  Sender: FDA-Public Use
  Company Number: US-JNJFOC-20121109656

PATIENT
  Age: 62 Year
  Sex: Male
  Weight: 90.72 kg

DRUGS (3)
  1. REMICADE [Suspect]
     Indication: COLITIS ULCERATIVE
     Dosage: 2nd infusion was 2 weeks later and 3rd infusion was 6 weeks later
     Route: 042
     Dates: start: 20120703
  2. REMICADE [Suspect]
     Indication: COLITIS ULCERATIVE
     Dosage: 4th infusion
     Route: 042
     Dates: start: 20121008, end: 20121008
  3. ASACOL [Concomitant]
     Indication: COLITIS ULCERATIVE
     Route: 048
     Dates: start: 200107

REACTIONS (6)
  - Headache [Recovered/Resolved]
  - Urticaria [Recovered/Resolved]
  - Feeling abnormal [Recovered/Resolved]
  - Colon dysplasia [Not Recovered/Not Resolved]
  - Diarrhoea [Not Recovered/Not Resolved]
  - Weight decreased [Not Recovered/Not Resolved]
